FAERS Safety Report 8369618-8 (Version None)
Quarter: 2012Q2

REPORT INFORMATION
  Report Type: 
  Country: None (occurrence: None)
  Receive Date: 20120518
  Receipt Date: 20120517
  Transmission Date: 20120825
  Serious: Yes (Death, Life-Threatening, Hospitalization, Other)
  Sender: FDA-Public Use
  Company Number: PHFR2010GB00529

PATIENT
  Sex: Male

DRUGS (7)
  1. CLOZARIL [Suspect]
     Indication: SCHIZOPHRENIA
     Dosage: 150 MG, (50 MG AM, 100 MG PM)
     Route: 048
     Dates: start: 19990722
  2. LOPERAMIDE [Concomitant]
     Dosage: 4 MG, UNK
     Route: 048
     Dates: start: 20100817
  3. GRANULOCYTE COLONY STIMULATING FACTOR [Concomitant]
  4. CLOZARIL [Suspect]
     Dosage: 175 MG, DAILY
     Route: 048
     Dates: start: 19990101, end: 20120125
  5. ANTIBIOTICS [Concomitant]
     Indication: PYREXIA
     Route: 042
  6. HALOPERIDOL [Concomitant]
     Indication: SCHIZOPHRENIA
     Dosage: 1 MG, TID
     Route: 048
     Dates: start: 20120125
  7. IBUPROFEN [Concomitant]
     Indication: MUSCULOSKELETAL PAIN
     Route: 048

REACTIONS (22)
  - NEUTROPHIL COUNT DECREASED [None]
  - WHITE BLOOD CELL COUNT DECREASED [None]
  - PLATELET COUNT DECREASED [None]
  - TERMINAL STATE [None]
  - MEAN CELL HAEMOGLOBIN DECREASED [None]
  - MEAN CELL VOLUME DECREASED [None]
  - NEUTROPENIA [None]
  - PAIN [None]
  - PYREXIA [None]
  - INFECTION [None]
  - HAEMOGLOBIN DECREASED [None]
  - WHITE BLOOD CELL COUNT INCREASED [None]
  - NEOPLASM MALIGNANT [None]
  - LOSS OF CONSCIOUSNESS [None]
  - PLEURAL EFFUSION [None]
  - DIZZINESS [None]
  - LYMPHOCYTE COUNT DECREASED [None]
  - BONE NEOPLASM MALIGNANT [None]
  - CIRCULATORY COLLAPSE [None]
  - NON-HODGKIN'S LYMPHOMA [None]
  - NEUTROPHIL COUNT INCREASED [None]
  - DIFFERENTIAL WHITE BLOOD CELL COUNT ABNORMAL [None]
